FAERS Safety Report 17852759 (Version 1)
Quarter: 2020Q2

REPORT INFORMATION
  Report Type: Spontaneous
  Country: US (occurrence: US)
  Receive Date: 20200602
  Receipt Date: 20200602
  Transmission Date: 20200714
  Serious: No
  Sender: FDA-Public Use
  Company Number: US-FOUNDATIONCONSUMERHC-2019-US-023798

PATIENT
  Age: 37 Year
  Sex: Female
  Weight: 74.84 kg

DRUGS (7)
  1. MAGNESIUM [Concomitant]
     Active Substance: MAGNESIUM
  2. MULTIVITAMIN [Concomitant]
     Active Substance: VITAMINS
  3. ZINC. [Concomitant]
     Active Substance: ZINC
  4. OVINITA [Concomitant]
  5. PLAN B ONE-STEP [Suspect]
     Active Substance: LEVONORGESTREL
     Indication: POST COITAL CONTRACEPTION
     Dosage: 1.5 MG X 1 DOSE
     Route: 048
     Dates: start: 20191206, end: 20191206
  6. CALCIUM [Concomitant]
     Active Substance: CALCIUM
  7. VITAMIN C [Concomitant]
     Active Substance: ASCORBIC ACID

REACTIONS (2)
  - Abdominal distension [Not Recovered/Not Resolved]
  - Dysmenorrhoea [Not Recovered/Not Resolved]

NARRATIVE: CASE EVENT DATE: 20191211
